FAERS Safety Report 22609101 (Version 1)
Quarter: 2023Q2

REPORT INFORMATION
  Report Type: Spontaneous
  Country: DE (occurrence: DE)
  Receive Date: 20230616
  Receipt Date: 20230616
  Transmission Date: 20230722
  Serious: Yes (Hospitalization)
  Sender: FDA-Public Use
  Company Number: DE-LEO Pharma-352664

PATIENT
  Sex: Male

DRUGS (9)
  1. DEVICE [Suspect]
     Active Substance: DEVICE
     Indication: Product used for unknown indication
  2. ADBRY [Suspect]
     Active Substance: TRALOKINUMAB-LDRM
     Indication: Product used for unknown indication
     Dosage: DOSAGE : NO POSOLOGY INFORMATION REPORTED
     Dates: start: 202305
  3. ADBRY [Suspect]
     Active Substance: TRALOKINUMAB-LDRM
     Indication: Product used for unknown indication
     Dosage: DOSAGE : NO POSOLOGY INFORMATION REPORTED
     Dates: start: 202305
  4. ADBRY [Suspect]
     Active Substance: TRALOKINUMAB-LDRM
     Indication: Product used for unknown indication
     Dosage: SECOND DOSE
     Dates: start: 20230608
  5. ADBRY [Suspect]
     Active Substance: TRALOKINUMAB-LDRM
     Indication: Product used for unknown indication
     Dosage: SECOND DOSE
     Dates: start: 20230608
  6. ADBRY [Suspect]
     Active Substance: TRALOKINUMAB-LDRM
     Indication: Product used for unknown indication
     Dosage: SECOND DOSE
     Dates: start: 20230608
  7. ADBRY [Suspect]
     Active Substance: TRALOKINUMAB-LDRM
     Indication: Product used for unknown indication
     Dosage: SECOND DOSE
     Dates: start: 20230608
  8. ADBRY [Suspect]
     Active Substance: TRALOKINUMAB-LDRM
     Indication: Product used for unknown indication
     Dosage: DOSAGE : NO POSOLOGY INFORMATION REPORTED
     Dates: start: 202305
  9. ADBRY [Suspect]
     Active Substance: TRALOKINUMAB-LDRM
     Indication: Product used for unknown indication
     Dosage: DOSAGE : NO POSOLOGY INFORMATION REPORTED
     Dates: start: 202305

REACTIONS (6)
  - Headache [Unknown]
  - Vomiting [Unknown]
  - Vomiting [Unknown]
  - Rash [Unknown]
  - Headache [Unknown]
  - Rash [Unknown]

NARRATIVE: CASE EVENT DATE: 20230609
